FAERS Safety Report 12117753 (Version 3)
Quarter: 2016Q1

REPORT INFORMATION
  Report Type: Spontaneous
  Country: AR (occurrence: AR)
  Receive Date: 20160226
  Receipt Date: 20160325
  Transmission Date: 20160526
  Serious: Yes (Hospitalization, Other)
  Sender: FDA-Public Use
  Company Number: AR-PFIZER INC-2016110584

PATIENT
  Age: 70 Year
  Sex: Male

DRUGS (1)
  1. SUTENT [Suspect]
     Active Substance: SUNITINIB MALATE
     Indication: GASTROINTESTINAL STROMAL TUMOUR
     Dosage: 50 MG, CYCLIC, SCHEME 4/2
     Dates: start: 20151231

REACTIONS (6)
  - General physical health deterioration [Recovering/Resolving]
  - Pyrexia [Not Recovered/Not Resolved]
  - Decreased immune responsiveness [Recovered/Resolved]
  - Infection [Recovering/Resolving]
  - Abscess [Recovered/Resolved]
  - Gastric haemorrhage [Recovered/Resolved]

NARRATIVE: CASE EVENT DATE: 20160211
